FAERS Safety Report 5888596-4 (Version None)
Quarter: 2008Q3

REPORT INFORMATION
  Report Type: 
  Country: None (occurrence: None)
  Receive Date: 20080918
  Receipt Date: 20080909
  Transmission Date: 20090109
  Serious: Yes (Other)
  Sender: FDA-Public Use
  Company Number: US-AMGEN-QUU303260

PATIENT
  Sex: Male
  Weight: 91.7 kg

DRUGS (9)
  1. ENBREL [Suspect]
     Indication: PSORIASIS
     Route: 058
     Dates: start: 20050501
  2. ENBREL [Suspect]
     Indication: PSORIATIC ARTHROPATHY
  3. PLAVIX [Concomitant]
  4. METHOTREXATE [Concomitant]
     Dates: start: 20061001, end: 20070501
  5. ZOCOR [Concomitant]
  6. COREG [Concomitant]
     Dates: start: 20040101
  7. NITROGLYCERIN [Concomitant]
     Route: 060
  8. PROZAC [Concomitant]
  9. CYMBALTA [Concomitant]
     Dates: start: 20080101

REACTIONS (4)
  - BLOOD TRIGLYCERIDES INCREASED [None]
  - EPISTAXIS [None]
  - HAEMOGLOBIN DECREASED [None]
  - PULMONARY FIBROSIS [None]
